FAERS Safety Report 8970232 (Version 1)
Quarter: 2012Q4

REPORT INFORMATION
  Report Type: 
  Country: GB (occurrence: US)
  Receive Date: 20121217
  Receipt Date: 20121217
  Transmission Date: 20130627
  Serious: Yes (Hospitalization)
  Sender: FDA-Public Use
  Company Number: US-009507513-1212USA004644

PATIENT
  Age: 39 Year
  Sex: Male
  Weight: 80.1 kg

DRUGS (7)
  1. TEMOZOLOMIDE [Suspect]
     Indication: GLIOBLASTOMA
     Dosage: 300 mg, UNK
     Route: 048
     Dates: start: 20101129, end: 20121203
  2. BEVACIZUMAB [Suspect]
     Indication: GLIOBLASTOMA
     Dosage: 800 mg,1 in 2 wk
     Route: 042
     Dates: start: 20101129
  3. TOPOTECAN [Suspect]
     Indication: GLIOBLASTOMA
     Dosage: UNK
     Dates: start: 20101130, end: 20101204
  4. DECADRON TABLETS [Concomitant]
     Dosage: 2 mg
     Route: 048
  5. KEPRA [Concomitant]
     Dosage: 500 mg, tid
     Route: 048
  6. PEPCID [Concomitant]
     Dosage: 40 mg, HS
  7. ZOFRAN [Concomitant]
     Dosage: 4 mg evry 8 hrs, PRN

REACTIONS (1)
  - Infection [Unknown]
